FAERS Safety Report 5376815-2 (Version None)
Quarter: 2007Q3

REPORT INFORMATION
  Report Type: 
  Country: None (occurrence: None)
  Receive Date: 20070703
  Receipt Date: 20070626
  Transmission Date: 20080115
  Serious: Yes (Hospitalization)
  Sender: FDA-Public Use
  Company Number: PHBS2007BR10434

PATIENT
  Age: 52 Year
  Sex: Female
  Weight: 62 kg

DRUGS (1)
  1. DIOVAN [Suspect]
     Indication: HYPERTENSION
     Dosage: 80 MG, QD
     Route: 048

REACTIONS (5)
  - BLOOD PRESSURE INCREASED [None]
  - GAIT DISTURBANCE [None]
  - HEART RATE INCREASED [None]
  - MALAISE [None]
  - OEDEMA PERIPHERAL [None]
